FAERS Safety Report 20121675 (Version 1)
Quarter: 2021Q4

REPORT INFORMATION
  Report Type: Spontaneous
  Country: US (occurrence: US)
  Receive Date: 20211128
  Receipt Date: 20211128
  Transmission Date: 20220303
  Serious: No
  Sender: FDA-Public Use
  Company Number: US-AMGEN-USASP2021187114

PATIENT
  Age: 63 Year
  Sex: Female

DRUGS (29)
  1. OTEZLA [Suspect]
     Active Substance: APREMILAST
     Indication: Psoriatic arthropathy
     Dosage: 30 MILLIGRAM, BID
     Route: 048
  2. FREEDOM [Concomitant]
  3. METFORMIN HYDROCHLORIDE [Concomitant]
     Active Substance: METFORMIN HYDROCHLORIDE
  4. ZINC [Concomitant]
     Active Substance: ZINC
  5. OMEPRAZOLE [Concomitant]
     Active Substance: OMEPRAZOLE
  6. ZOFRAN [Concomitant]
     Active Substance: ONDANSETRON HYDROCHLORIDE
  7. PROAIR DIGIHALER [Concomitant]
     Active Substance: ALBUTEROL SULFATE
  8. RIZATRIPTAN BENZOATE [Concomitant]
     Active Substance: RIZATRIPTAN BENZOATE
  9. MENOPAUSE SUPPORT [CIMICIFUGA RACEMOSA;DIOSCOREA VILLOSA] [Concomitant]
  10. SULFASALAZINE [Concomitant]
     Active Substance: SULFASALAZINE
  11. ASPIRIN [Concomitant]
     Active Substance: ASPIRIN
  12. CALCIUM [Concomitant]
     Active Substance: CALCIUM
  13. CALCIPOTRIENE [Concomitant]
     Active Substance: CALCIPOTRIENE
  14. CHOLECALCIFEROL [Concomitant]
     Active Substance: CHOLECALCIFEROL
  15. NAPROXEN [Concomitant]
     Active Substance: NAPROXEN
  16. DICLOFENAC SODIUM [Concomitant]
     Active Substance: DICLOFENAC SODIUM
  17. DOXEPIN HCL [Concomitant]
     Active Substance: DOXEPIN HYDROCHLORIDE
  18. DULOXETINE HYDROCHLORIDE [Concomitant]
     Active Substance: DULOXETINE HYDROCHLORIDE
  19. ESTRING [Concomitant]
     Active Substance: ESTRADIOL
  20. FLUTICASONE PROPIONATE [Concomitant]
     Active Substance: FLUTICASONE PROPIONATE
  21. HUMALOG [Concomitant]
     Active Substance: INSULIN LISPRO
  22. HYDROCODONE [Concomitant]
     Active Substance: HYDROCODONE
  23. PHENYLEPHRINE [Concomitant]
     Active Substance: PHENYLEPHRINE HYDROCHLORIDE
  24. JARDIANCE [Concomitant]
     Active Substance: EMPAGLIFLOZIN
  25. LOSARTAN [Concomitant]
     Active Substance: LOSARTAN
  26. POTASSIUM [Concomitant]
     Active Substance: POTASSIUM
  27. MAGNESIUM [Concomitant]
     Active Substance: MAGNESIUM
  28. MELOXICAM [Concomitant]
     Active Substance: MELOXICAM
  29. MULTI COMPLETE [Concomitant]

REACTIONS (1)
  - Adverse event [Unknown]

NARRATIVE: CASE EVENT DATE: 20211122
